FAERS Safety Report 21166515 (Version 1)
Quarter: 2022Q3

REPORT INFORMATION
  Report Type: Spontaneous
  Country: KR (occurrence: KR)
  Receive Date: 20220803
  Receipt Date: 20220803
  Transmission Date: 20221026
  Serious: Yes (Other)
  Sender: FDA-Public Use
  Company Number: KR-JNJFOC-20220754702

PATIENT
  Sex: Female

DRUGS (11)
  1. INVEGA [Suspect]
     Active Substance: PALIPERIDONE
     Indication: Product used for unknown indication
     Route: 048
     Dates: start: 201909, end: 202101
  2. INVEGA [Suspect]
     Active Substance: PALIPERIDONE
     Route: 048
     Dates: start: 201910
  3. SPRAVATO [Suspect]
     Active Substance: ESKETAMINE
     Indication: Product used for unknown indication
     Route: 045
     Dates: start: 202101
  4. ABILIFY [Concomitant]
     Active Substance: ARIPIPRAZOLE
  5. BUSPIRONE [Concomitant]
     Active Substance: BUSPIRONE HYDROCHLORIDE
  6. LAMOTRIGINE [Concomitant]
     Active Substance: LAMOTRIGINE
  7. ALPRAZOLAM [Concomitant]
     Active Substance: ALPRAZOLAM
  8. SERTRALINE [Concomitant]
     Active Substance: SERTRALINE HYDROCHLORIDE
  9. QUETIAPINE [Concomitant]
     Active Substance: QUETIAPINE
  10. LITHIUM [Concomitant]
     Active Substance: LITHIUM
  11. DESVENLAFAXINE [Concomitant]
     Active Substance: DESVENLAFAXINE

REACTIONS (16)
  - Suicide attempt [Unknown]
  - Intentional self-injury [Recovering/Resolving]
  - Suicidal ideation [Unknown]
  - Self-injurious ideation [Not Recovered/Not Resolved]
  - Anxiety [Recovering/Resolving]
  - Treatment noncompliance [Unknown]
  - Depression [Recovering/Resolving]
  - Dizziness [Recovered/Resolved]
  - Blood pressure increased [Recovered/Resolved]
  - Somnolence [Unknown]
  - Anger [Recovering/Resolving]
  - Movement disorder [Unknown]
  - Insomnia [Unknown]
  - Sensory disturbance [Recovered/Resolved]
  - Stress [Unknown]
  - Sleep disorder [Unknown]

NARRATIVE: CASE EVENT DATE: 20190901
